FAERS Safety Report 25146954 (Version 2)
Quarter: 2025Q2

REPORT INFORMATION
  Report Type: Spontaneous
  Country: US (occurrence: US)
  Receive Date: 20250401
  Receipt Date: 20250409
  Transmission Date: 20250716
  Serious: No
  Sender: PFIZER
  Company Number: US-PFIZER INC-PV202500037633

PATIENT
  Sex: Female

DRUGS (1)
  1. ESTRING [Suspect]
     Active Substance: ESTRADIOL

REACTIONS (2)
  - Reaction to excipient [Unknown]
  - Hypersensitivity [Unknown]
